FAERS Safety Report 13041881 (Version 1)
Quarter: 2016Q4

REPORT INFORMATION
  Report Type: Spontaneous
  Country: US (occurrence: US)
  Receive Date: 20161219
  Receipt Date: 20161219
  Transmission Date: 20170207
  Serious: No
  Sender: FDA-Public Use
  Company Number: US-ROCHE-CID000000001987004

PATIENT
  Age: 54 Year
  Sex: Male

DRUGS (8)
  1. LANTUS [Concomitant]
     Active Substance: INSULIN GLARGINE
  2. FUROSEMIDE. [Concomitant]
     Active Substance: FUROSEMIDE
  3. OXYCODONE [Concomitant]
     Active Substance: OXYCODONE
  4. ZELBORAF [Suspect]
     Active Substance: VEMURAFENIB
     Indication: METASTATIC MALIGNANT MELANOMA
     Route: 048
  5. SYNTHROID [Concomitant]
     Active Substance: LEVOTHYROXINE SODIUM
  6. CHLORPROMAZINE. [Concomitant]
     Active Substance: CHLORPROMAZINE
  7. ACIPHEX [Concomitant]
     Active Substance: RABEPRAZOLE SODIUM
  8. VICODIN [Concomitant]
     Active Substance: ACETAMINOPHEN\HYDROCODONE BITARTRATE

REACTIONS (2)
  - Hyperkeratosis [Unknown]
  - Gingival hypertrophy [Unknown]
